FAERS Safety Report 10453569 (Version 2)
Quarter: 2014Q4

REPORT INFORMATION
  Report Type: Spontaneous
  Country: US (occurrence: US)
  Receive Date: 20140915
  Receipt Date: 20141205
  Transmission Date: 20150528
  Serious: No
  Sender: FDA-Public Use
  Company Number: US-BRISTOL-MYERS SQUIBB COMPANY-21190343

PATIENT
  Age: 85 Year
  Sex: Female

DRUGS (4)
  1. PRAVASTATIN SODIUM. [Concomitant]
     Active Substance: PRAVASTATIN SODIUM
  2. MULTIVITAMIN [Concomitant]
     Active Substance: VITAMINS
  3. ELIQUIS [Suspect]
     Active Substance: APIXABAN
  4. OSCAL [Concomitant]
     Active Substance: CALCIUM CARBONATE

REACTIONS (1)
  - Arthralgia [Unknown]
